FAERS Safety Report 8591682-1 (Version None)
Quarter: 2012Q3

REPORT INFORMATION
  Report Type: 
  Country: None (occurrence: None)
  Receive Date: 20120814
  Receipt Date: 20120805
  Transmission Date: 20120928
  Serious: Yes (Hospitalization)
  Sender: FDA-Public Use
  Company Number: DE-NOVOPROD-348482

PATIENT
  Age: 13 Year
  Sex: Male
  Weight: 47.3 kg

DRUGS (3)
  1. NOVOSEVEN [Suspect]
     Indication: FACTOR VIII DEFICIENCY
     Dosage: 8+5MG EVERY SECOND DAY
     Route: 042
     Dates: start: 20080101
  2. NOVOSEVEN [Suspect]
     Dosage: 8+5MG EVERY SECOND DAY
     Route: 042
  3. IBUPROFEN [Concomitant]
     Indication: MUSCLE HAEMORRHAGE
     Dosage: UNK
     Route: 048
     Dates: start: 20120320

REACTIONS (4)
  - HAEMATURIA [None]
  - BACK PAIN [None]
  - VOMITING [None]
  - ABDOMINAL PAIN [None]
